FAERS Safety Report 22220018 (Version 1)
Quarter: 2023Q2

REPORT INFORMATION
  Report Type: Spontaneous
  Country: CN (occurrence: CN)
  Receive Date: 20230417
  Receipt Date: 20230417
  Transmission Date: 20230722
  Serious: Yes (Hospitalization, Other)
  Sender: FDA-Public Use
  Company Number: CN-AMNEAL PHARMACEUTICALS-2023-AMRX-01249

PATIENT
  Age: 60 Year
  Sex: Female

DRUGS (1)
  1. OXCARBAZEPINE [Suspect]
     Active Substance: OXCARBAZEPINE
     Indication: Epilepsy
     Dosage: 0.3 GRAM, BID
     Route: 048

REACTIONS (4)
  - Atrial fibrillation [Unknown]
  - Cardiac arrest [Unknown]
  - Sinoatrial block [Unknown]
  - Atrioventricular block second degree [Unknown]
